FAERS Safety Report 4312187-X (Version None)
Quarter: 2004Q1

REPORT INFORMATION
  Report Type: 
  Country: None (occurrence: None)
  Receive Date: 20040303
  Receipt Date: 20040219
  Transmission Date: 20041129
  Serious: Yes (Other)
  Sender: FDA-Public Use
  Company Number: 2004002972

PATIENT
  Age: 59 Year
  Sex: Female

DRUGS (9)
  1. ZITHROMAX [Suspect]
     Indication: BRONCHITIS ACUTE
     Dosage: 500 MG (DAILY), ORAL
     Route: 048
     Dates: start: 20040113, end: 20040113
  2. FOSFOMYCIN CALCIUM (FOSFOMYCIN CALCIUM) [Concomitant]
  3. PRANOPROFEN (PRANOPROFEN) [Concomitant]
  4. LANSOPRAZOLE [Concomitant]
  5. NIZATIDINE [Concomitant]
  6. PROTEASE (PROTEASE) [Concomitant]
  7. EPRAZINONE HYDROCHLORIDE (EPRAZINONE HYDROCHLORIDE) [Concomitant]
  8. MEQUITAZINE (MEQUITAZINE) [Concomitant]
  9. VITAMIN U (VITAMIN U) [Concomitant]

REACTIONS (2)
  - ANAPHYLACTIC SHOCK [None]
  - LOSS OF CONSCIOUSNESS [None]
